FAERS Safety Report 9228426 (Version 1)
Quarter: 2013Q2

REPORT INFORMATION
  Report Type: Report from Study
  Country: FR (occurrence: FR)
  Receive Date: 20130412
  Receipt Date: 20130412
  Transmission Date: 20140414
  Serious: Yes (Hospitalization)
  Sender: FDA-Public Use
  Company Number: FR-ROCHE-1212106

PATIENT
  Age: 84 Year
  Sex: Female
  Weight: 60 kg

DRUGS (4)
  1. HEPARIN [Suspect]
     Indication: ANTICOAGULANT THERAPY
     Route: 042
     Dates: start: 20120424, end: 20120427
  2. CORTANCYL [Concomitant]
     Route: 048
  3. CELECTOL [Concomitant]
     Indication: HYPERTENSION
     Route: 048
     Dates: start: 20120424
  4. TENECTEPLASE [Suspect]
     Indication: PULMONARY EMBOLISM
     Route: 042
     Dates: start: 20120424, end: 20120424

REACTIONS (3)
  - Haemoglobin decreased [Recovered/Resolved]
  - Haemorrhage [Recovered/Resolved]
  - Haematoma [Recovered/Resolved]
